FAERS Safety Report 11536911 (Version 1)
Quarter: 2015Q3

REPORT INFORMATION
  Report Type: Spontaneous
  Country: GB (occurrence: None)
  Receive Date: 20150921
  Receipt Date: 20150921
  Transmission Date: 20151125
  Serious: No
  Sender: FDA-Public Use
  Company Number: None

PATIENT
  Age: 69 Year
  Sex: Male
  Weight: 88.91 kg

DRUGS (8)
  1. NAPROXEN. [Suspect]
     Active Substance: NAPROXEN
     Indication: SPINAL FUSION SURGERY
     Dosage: 1 PILL TWICE DAILY TAKEN BY MOUTH
     Route: 048
     Dates: start: 20150714, end: 20150804
  2. PARACETAMOL [Concomitant]
     Active Substance: ACETAMINOPHEN
  3. GABAPENTIN. [Concomitant]
     Active Substance: GABAPENTIN
  4. NAPROXEN. [Suspect]
     Active Substance: NAPROXEN
     Indication: OSTEOARTHRITIS
     Dosage: 1 PILL TWICE DAILY TAKEN BY MOUTH
     Route: 048
     Dates: start: 20150714, end: 20150804
  5. NAPROXEN. [Suspect]
     Active Substance: NAPROXEN
     Indication: SCOLIOSIS
     Dosage: 1 PILL TWICE DAILY TAKEN BY MOUTH
     Route: 048
     Dates: start: 20150714, end: 20150804
  6. SIMVASTATIN. [Concomitant]
     Active Substance: SIMVASTATIN
  7. CODEINE [Concomitant]
     Active Substance: CODEINE
  8. QUININE [Concomitant]
     Active Substance: QUININE

REACTIONS (1)
  - Renal disorder [None]

NARRATIVE: CASE EVENT DATE: 20150804
